FAERS Safety Report 12391700 (Version 1)
Quarter: 2016Q2

REPORT INFORMATION
  Report Type: Report from Study
  Country: BR (occurrence: BR)
  Receive Date: 20160522
  Receipt Date: 20160522
  Transmission Date: 20160815
  Serious: Yes (Death, Hospitalization, Other)
  Sender: FDA-Public Use
  Company Number: PHHY2016BR069258

PATIENT
  Age: 69 Year
  Sex: Male
  Weight: 50 kg

DRUGS (9)
  1. SEEBRI BREEZHALER [Suspect]
     Active Substance: GLYCOPYRROLATE
     Indication: RESPIRATORY FAILURE
     Dosage: 50 UG, QD
     Route: 055
     Dates: start: 201601
  2. MIRTAZAPINE. [Concomitant]
     Active Substance: MIRTAZAPINE
     Indication: PRODUCT USED FOR UNKNOWN INDICATION
     Dosage: 0.5 DF, QD
     Route: 048
     Dates: start: 201507
  3. ENALAPRIL [Concomitant]
     Active Substance: ENALAPRIL
     Indication: PRODUCT USED FOR UNKNOWN INDICATION
     Dosage: 5 MG, QD
     Route: 048
     Dates: start: 201507
  4. ALPRAZOLAM. [Concomitant]
     Active Substance: ALPRAZOLAM
     Indication: PRODUCT USED FOR UNKNOWN INDICATION
     Dosage: 0.25 MG (1 TABLET), QD
     Route: 048
     Dates: start: 201507
  5. ONBREZ BREEZHALER [Suspect]
     Active Substance: INDACATEROL
     Indication: RESPIRATORY FAILURE
     Dosage: 150 UG, QD
     Route: 055
     Dates: start: 201601
  6. MAREVAN [Concomitant]
     Active Substance: WARFARIN SODIUM
     Indication: PRODUCT USED FOR UNKNOWN INDICATION
     Dosage: 1 AND 1/2 TABLETS PER DAY, QD
     Route: 048
     Dates: start: 201507
  7. FUROSEMIDE. [Concomitant]
     Active Substance: FUROSEMIDE
     Indication: PRODUCT USED FOR UNKNOWN INDICATION
     Dosage: 2 DF, QD
     Route: 048
     Dates: start: 201507
  8. OXYGEN. [Concomitant]
     Active Substance: OXYGEN
     Indication: CARDIAC DISORDER
     Route: 065
  9. SERETID [Concomitant]
     Indication: RESPIRATORY FAILURE
     Dosage: (2 JETS A DAY) (50, 250 UG), QD
     Route: 055
     Dates: end: 201601

REACTIONS (6)
  - Cardiac arrest [Fatal]
  - Respiratory failure [Fatal]
  - Cardio-respiratory arrest [Fatal]
  - Product use issue [Unknown]
  - Respiratory disorder [Unknown]
  - Pneumonia [Fatal]

NARRATIVE: CASE EVENT DATE: 20160218
